FAERS Safety Report 9182714 (Version 1)
Quarter: 2013Q1

REPORT INFORMATION
  Report Type: Spontaneous
  Country: US (occurrence: US)
  Receive Date: 20130322
  Receipt Date: 20130322
  Transmission Date: 20140127
  Serious: No
  Sender: FDA-Public Use
  Company Number: US-PFIZER INC-2013091531

PATIENT
  Age: 46 Year
  Sex: Female
  Weight: 113 kg

DRUGS (3)
  1. SOMAVERT [Suspect]
     Indication: ACROMEGALY
     Dosage: 20 MG, 1X/DAY
     Dates: start: 20130308, end: 20130317
  2. BROMOCRIPTINE [Concomitant]
     Indication: PITUITARY TUMOUR BENIGN
     Dosage: UNK
  3. METHOTREXATE [Concomitant]
     Indication: ACROMEGALY
     Dosage: UNK

REACTIONS (2)
  - Joint swelling [Recovering/Resolving]
  - Drug ineffective [Unknown]
